FAERS Safety Report 7333297-9 (Version None)
Quarter: 2011Q1

REPORT INFORMATION
  Report Type: 
  Country: None (occurrence: None)
  Receive Date: 20110304
  Receipt Date: 20110218
  Transmission Date: 20110831
  Serious: Yes (Death)
  Sender: FDA-Public Use
  Company Number: US-CELGENEUS-163-21880-11012401

PATIENT
  Sex: Male

DRUGS (24)
  1. CELEXA [Concomitant]
     Dosage: 40 MILLIGRAM
     Route: 048
     Dates: start: 20101201
  2. FLAX SEED OIL [Concomitant]
     Route: 048
     Dates: start: 20101201
  3. CYANOCOBALAMIN [Concomitant]
     Dosage: 1000 MICROGRAM
     Route: 030
     Dates: start: 20101201
  4. CATALYN [Concomitant]
     Dosage: 3 TABLET
     Route: 048
     Dates: start: 20101201
  5. CALCIUM + VITAMIN D [Concomitant]
     Dosage: 1 TABLET
     Route: 048
     Dates: start: 20101201
  6. GLUCOSAMINE-CHONDROITIN [Concomitant]
     Dosage: 1 TABLET
     Route: 048
     Dates: start: 20101201
  7. FISH OIL [Concomitant]
     Dosage: 2 TABLET
     Route: 048
     Dates: start: 20101201
  8. OXYCONTIN [Concomitant]
     Dosage: 40 MILLIGRAM
     Route: 048
     Dates: start: 20101228
  9. HALDOL [Concomitant]
     Dosage: 5 MILLIGRAM
     Route: 065
     Dates: start: 20101228
  10. MULTIVITAMIN [Concomitant]
     Dosage: 1 TABLET
     Route: 048
     Dates: start: 20101201
  11. COLCHICINE [Concomitant]
     Dosage: .6 MILLIGRAM
     Route: 048
     Dates: start: 20101201
  12. COLACE [Concomitant]
     Dosage: 100 MILLIGRAM
     Route: 048
     Dates: start: 20101201
  13. SENOKOT [Concomitant]
     Indication: CONSTIPATION
     Dosage: 8.6 MILLIGRAM
     Route: 048
     Dates: start: 20101201
  14. HYDROCHLOROTHIAZIDE [Concomitant]
     Dosage: 25 MILLIGRAM
     Route: 048
     Dates: start: 20101201
  15. REVLIMID [Suspect]
     Dosage: 10 MILLIGRAM
     Route: 048
     Dates: start: 20101201
  16. ASPIRIN [Concomitant]
     Dosage: 81 MILLIGRAM
     Route: 048
     Dates: start: 20101201
  17. MULTI-VITAMINS [Concomitant]
     Route: 048
     Dates: start: 20101201
  18. LYRICA [Concomitant]
     Dosage: 150 MILLIGRAM
     Route: 048
     Dates: start: 20101201
  19. REVLIMID [Suspect]
     Indication: MULTIPLE MYELOMA
     Dosage: 15 MILLIGRAM
     Route: 048
     Dates: start: 20081201
  20. REVLIMID [Suspect]
     Dosage: 10-25MG
     Route: 048
     Dates: start: 20090101
  21. ALLOPURINOL [Concomitant]
     Dosage: 100 MILLIGRAM
     Route: 048
     Dates: start: 20101201
  22. VITAMIN D [Concomitant]
     Dosage: 1000 UNITS
     Route: 048
     Dates: start: 20101201
  23. ALPRAZOLAM [Concomitant]
     Indication: ANXIETY
     Dosage: 1 MILLIGRAM
     Route: 048
     Dates: start: 20101201
  24. CILOSTAZOL [Concomitant]
     Dosage: 100 MILLIGRAM
     Route: 048
     Dates: start: 20101201

REACTIONS (1)
  - DEATH [None]
